FAERS Safety Report 13834979 (Version 2)
Quarter: 2018Q2

REPORT INFORMATION
  Report Type: Spontaneous
  Country: AU (occurrence: AU)
  Receive Date: 20170804
  Receipt Date: 20180424
  Transmission Date: 20180711
  Serious: Yes (Hospitalization, Other)
  Sender: FDA-Public Use
  Company Number: AU-ENDO PHARMACEUTICALS INC-2017-004339

PATIENT
  Age: 75 Year
  Sex: Male

DRUGS (2)
  1. XIAFLEX [Suspect]
     Active Substance: COLLAGENASE CLOSTRIDIUM HISTOLYTICUM
     Indication: DUPUYTREN^S CONTRACTURE
     Dosage: 0.6 ML, SINGLE
     Route: 026
     Dates: start: 20170717, end: 20170717
  2. XYLOCAIN ADRENALIN [Suspect]
     Active Substance: EPINEPHRINE BITARTRATE\LIDOCAINE HYDROCHLORIDE
     Indication: LOCAL ANAESTHESIA
     Dosage: UNK UNKNOWN, UNK
     Route: 058
     Dates: start: 20170720, end: 20170720

REACTIONS (3)
  - Extremity necrosis [Recovered/Resolved with Sequelae]
  - Reperfusion injury [Recovered/Resolved with Sequelae]
  - Skin reaction [Recovered/Resolved with Sequelae]

NARRATIVE: CASE EVENT DATE: 20170720
